FAERS Safety Report 5831041-5 (Version None)
Quarter: 2008Q3

REPORT INFORMATION
  Report Type: 
  Country: None (occurrence: None)
  Receive Date: 20080801
  Receipt Date: 20080317
  Transmission Date: 20090109
  Serious: No
  Sender: FDA-Public Use
  Company Number: US-BRISTOL-MYERS SQUIBB COMPANY-14116941

PATIENT
  Age: 67 Year
  Sex: Female
  Weight: 59 kg

DRUGS (3)
  1. COUMADIN [Suspect]
     Indication: THROMBOSIS
     Dosage: 4MG/D FOR 2DAYS; 2MG/D FOR5DAYS.
     Dates: start: 19970101
  2. METHADONE HCL [Concomitant]
  3. OXYCODONE HCL [Concomitant]

REACTIONS (1)
  - OSTEOPOROSIS [None]
